FAERS Safety Report 6755790-X (Version None)
Quarter: 2010Q2

REPORT INFORMATION
  Report Type: 
  Country: None (occurrence: None)
  Receive Date: 20100524
  Receipt Date: 20100301
  Transmission Date: 20101027
  Serious: Yes (Hospitalization)
  Sender: FDA-Public Use
  Company Number: 008146

PATIENT
  Sex: Female

DRUGS (12)
  1. CIMZIA [Suspect]
     Indication: CROHN'S DISEASE
     Dosage: (400 MG 1X/2 WEEKS SUBCUTANEOUS) ; (400 MG 1X/MONTH SUBCUTANEOUS)
     Route: 058
     Dates: start: 20091201, end: 20100101
  2. CIMZIA [Suspect]
     Indication: CROHN'S DISEASE
     Dosage: (400 MG 1X/2 WEEKS SUBCUTANEOUS) ; (400 MG 1X/MONTH SUBCUTANEOUS)
     Route: 058
     Dates: start: 20100301
  3. PENTASA [Concomitant]
  4. CHOLESTYRAMINE [Concomitant]
  5. CYMBALTA [Concomitant]
  6. ZOLOFT [Concomitant]
  7. VITAMIN B-12 [Concomitant]
  8. IRON [Concomitant]
  9. VITAMIN D [Concomitant]
  10. FOLIC ACID [Concomitant]
  11. M.V.I. [Concomitant]
  12. NORVASC [Concomitant]

REACTIONS (1)
  - INTESTINAL STENOSIS [None]
